FAERS Safety Report 25213545 (Version 3)
Quarter: 2025Q3

REPORT INFORMATION
  Report Type: Spontaneous
  Country: EU (occurrence: EU)
  Receive Date: 20250418
  Receipt Date: 20250905
  Transmission Date: 20251020
  Serious: Yes (Hospitalization)
  Sender: DR REDDYS
  Company Number: None

PATIENT
  Age: 10 Year
  Sex: Female

DRUGS (2)
  1. IBUPROFEN [Suspect]
     Active Substance: IBUPROFEN
     Indication: Migraine
  2. ACETAMINOPHEN\ASPIRIN [Suspect]
     Active Substance: ACETAMINOPHEN\ASPIRIN
     Indication: Headache

REACTIONS (5)
  - Asthma [Recovered/Resolved]
  - Obstructive airways disorder [Recovered/Resolved]
  - NSAID exacerbated respiratory disease [Recovered/Resolved]
  - Drug hypersensitivity [Recovered/Resolved]
  - Chronic rhinosinusitis with nasal polyps [Recovered/Resolved]

NARRATIVE: CASE EVENT DATE: 20200901
